FAERS Safety Report 10006401 (Version 1)
Quarter: 2014Q1

REPORT INFORMATION
  Report Type: Spontaneous
  Country: GB (occurrence: GB)
  Receive Date: 20140313
  Receipt Date: 20140313
  Transmission Date: 20141002
  Serious: Yes (Other)
  Sender: FDA-Public Use
  Company Number: GB-009507513-1403GBR003185

PATIENT
  Age: 68 Year
  Sex: Female
  Weight: 63 kg

DRUGS (12)
  1. LOSARTAN POTASSIUM 50 MG [Suspect]
     Dosage: 75 MG, UNK
     Route: 048
     Dates: end: 201402
  2. LOSARTAN POTASSIUM 50 MG [Suspect]
     Dosage: 50 MG, UNK
     Route: 048
     Dates: start: 20131127
  3. AMLODIPINE [Concomitant]
     Dosage: UNK
     Dates: start: 20131030, end: 20131225
  4. ASPIRIN [Concomitant]
     Dosage: UNK
     Dates: start: 20131024, end: 20131219
  5. ATORVASTATIN [Concomitant]
     Dosage: UNK
     Dates: start: 20131029
  6. BECLOMETHASONE DIPROPIONATE [Concomitant]
     Dosage: UNK
     Route: 045
     Dates: start: 20140206
  7. BECLOMETHASONE DIPROPIONATE [Concomitant]
     Dosage: UNK
     Route: 045
     Dates: start: 20131206, end: 20140103
  8. CLOPIDOGREL [Concomitant]
     Dosage: UNK
     Dates: start: 20140206
  9. FERROUS FUMARATE [Concomitant]
     Dosage: UNK
     Dates: start: 20131206
  10. HYDROXOCOBALAMIN [Concomitant]
     Dosage: UNK
     Dates: start: 20131018, end: 20140111
  11. PENTOXIFYLLINE [Concomitant]
     Dosage: UNK
     Dates: start: 20131219, end: 20140118
  12. RAMIPRIL [Concomitant]
     Dosage: UNK
     Dates: start: 20131030, end: 20131127

REACTIONS (3)
  - Chillblains [Unknown]
  - Pain in extremity [Recovering/Resolving]
  - Oedema peripheral [Recovering/Resolving]
